FAERS Safety Report 8774060 (Version 1)
Quarter: 2012Q4

REPORT INFORMATION
  Report Type: 
  Country: CH (occurrence: CH)
  Receive Date: 20120908
  Receipt Date: 20120908
  Transmission Date: 20130627
  Serious: Yes (Other)
  Sender: FDA-Public Use
  Company Number: CH-AMGEN-CHESP2012056105

PATIENT
  Age: 59 Year
  Sex: Female
  Weight: 48 kg

DRUGS (9)
  1. ENBREL [Suspect]
     Indication: RHEUMATOID ARTHRITIS
     Dosage: 50 mg, weekly
     Route: 058
     Dates: start: 20120113, end: 20120606
  2. ENBREL [Suspect]
     Dosage: UNK
  3. ELTROXIN [Concomitant]
     Indication: HYPOTHYROIDISM
     Dosage: 0.1mg and 0.15 mg daily, alternated
     Route: 048
     Dates: start: 1987
  4. PREDNISON [Concomitant]
     Indication: RHEUMATOID ARTHRITIS
     Dosage: 5 mg, daily
     Route: 048
     Dates: start: 201102
  5. VI-DE 3 [Concomitant]
     Indication: OSTEOPOROSIS
     Dosage: 20 Gtt, daily
     Route: 048
     Dates: start: 201102
  6. CALCIMAGON                         /00751501/ [Concomitant]
     Indication: OSTEOPOROSIS
     Dosage: 1 DF, daily
     Route: 048
     Dates: start: 20110202
  7. PANTOPRAZOL [Concomitant]
     Indication: ANTACID THERAPY
     Dosage: 20 mg, daily
     Dates: start: 201102
  8. OLFEN                              /00372302/ [Concomitant]
     Indication: ANALGESIC THERAPY
     Dosage: 75 mg, as needed
     Dates: start: 201102
  9. BONVIVA [Concomitant]
     Indication: OSTEOPOROSIS
     Dosage: 3 mg, every 3 months
     Route: 042

REACTIONS (2)
  - Conductive deafness [Recovered/Resolved]
  - Otitis media [Recovered/Resolved]
